FAERS Safety Report 23668589 (Version 1)
Quarter: 2024Q1

REPORT INFORMATION
  Report Type: Spontaneous
  Country: US (occurrence: US)
  Receive Date: 20240325
  Receipt Date: 20240325
  Transmission Date: 20240409
  Serious: No
  Sender: FDA-Public Use
  Company Number: US-BRISTOL-MYERS SQUIBB COMPANY-2024-047151

PATIENT
  Age: 39 Year
  Sex: Female

DRUGS (3)
  1. SPRYCEL [Suspect]
     Active Substance: DASATINIB
     Indication: Chronic myeloid leukaemia (in remission)
     Route: 048
     Dates: start: 201910
  2. KEFLEX [Suspect]
     Active Substance: CEPHALEXIN
     Indication: Product used for unknown indication
  3. DUPIXENT [Concomitant]
     Active Substance: DUPILUMAB
     Indication: Eosinophilic oesophagitis
     Dates: start: 202206

REACTIONS (2)
  - Rash [Unknown]
  - Swelling [Unknown]
